FAERS Safety Report 12786980 (Version 1)
Quarter: 2016Q3

REPORT INFORMATION
  Report Type: Spontaneous
  Country: FR (occurrence: FR)
  Receive Date: 20160928
  Receipt Date: 20160928
  Transmission Date: 20161109
  Serious: Yes (Hospitalization)
  Sender: FDA-Public Use
  Company Number: FR-CHIESI USA INC.-FR-2016CHI001369

PATIENT
  Age: 1 Day
  Sex: Male

DRUGS (2)
  1. CUROSURF [Suspect]
     Active Substance: PORACTANT ALFA
     Indication: OFF LABEL USE
  2. CUROSURF [Suspect]
     Active Substance: PORACTANT ALFA
     Indication: PNEUMOTHORAX
     Dosage: 240 MG, ONCE
     Route: 007
     Dates: start: 20160506, end: 20160506

REACTIONS (3)
  - Tracheal oedema [Recovered/Resolved]
  - Infection [Recovered/Resolved]
  - Off label use [Recovered/Resolved]

NARRATIVE: CASE EVENT DATE: 20160506
